FAERS Safety Report 4898828-7 (Version None)
Quarter: 2006Q1

REPORT INFORMATION
  Report Type: 
  Country: None (occurrence: None)
  Receive Date: 20060202
  Receipt Date: 20051122
  Transmission Date: 20060701
  Serious: Yes (Hospitalization)
  Sender: FDA-Public Use
  Company Number: FR-GLAXOSMITHKLINE-B0401484A

PATIENT
  Age: 52 Year
  Sex: Male

DRUGS (10)
  1. NIMBEX [Suspect]
     Indication: GENERAL ANAESTHESIA
     Route: 042
     Dates: start: 20050623, end: 20050623
  2. CEFACIDAL [Suspect]
     Indication: ANTIBIOTIC PROPHYLAXIS
     Route: 042
     Dates: start: 20050623, end: 20050623
  3. DROLEPTAN [Suspect]
     Route: 065
     Dates: start: 20050623, end: 20050623
  4. TRASYLOL [Suspect]
     Route: 042
     Dates: start: 20050623, end: 20050623
  5. MIDAZOLAM HCL [Suspect]
     Indication: GENERAL ANAESTHESIA
     Route: 065
     Dates: start: 20050623, end: 20050623
  6. DIPRIVAN [Suspect]
     Indication: GENERAL ANAESTHESIA
     Route: 042
     Dates: start: 20050623, end: 20050623
  7. SUFENTANIL CITRATE [Suspect]
     Indication: NERVE BLOCK
     Route: 042
     Dates: start: 20050623, end: 20050623
  8. ACETAMINOPHEN [Suspect]
     Indication: NERVE BLOCK
     Route: 065
     Dates: start: 20050623
  9. CATAPRES [Suspect]
     Indication: NERVE BLOCK
     Route: 065
     Dates: start: 20050623
  10. MARCAINE [Suspect]
     Indication: ANAESTHESIA
     Dosage: .25UNIT PER DAY
     Route: 065
     Dates: start: 20050623

REACTIONS (2)
  - OEDEMA [None]
  - URTICARIA [None]
